FAERS Safety Report 24933659 (Version 1)
Quarter: 2025Q1

REPORT INFORMATION
  Report Type: Report from Study
  Country: US (occurrence: US)
  Receive Date: 20250206
  Receipt Date: 20250206
  Transmission Date: 20250409
  Serious: Yes (Other)
  Sender: EXELIXIS
  Company Number: US-EXELIXIS-CABO-24073076

PATIENT
  Age: 64 Year
  Sex: Female

DRUGS (8)
  1. CABOMETYX [Suspect]
     Active Substance: CABOZANTINIB S-MALATE
     Indication: Gastric neuroendocrine carcinoma
     Dosage: 40 MG, QD
     Dates: start: 20240101
  2. CABOMETYX [Suspect]
     Active Substance: CABOZANTINIB S-MALATE
  3. OCTREOTIDE [Suspect]
     Active Substance: OCTREOTIDE
     Indication: Gastric neuroendocrine carcinoma
     Dates: start: 20240101
  4. OMEPRAZOLE [Concomitant]
     Active Substance: OMEPRAZOLE
  5. ZOFRAN [Concomitant]
     Active Substance: ONDANSETRON HYDROCHLORIDE
  6. IMODIUM [Concomitant]
     Active Substance: LOPERAMIDE HYDROCHLORIDE
  7. TUMS [Concomitant]
     Active Substance: CALCIUM CARBONATE
  8. XGEVA [Concomitant]
     Active Substance: DENOSUMAB

REACTIONS (11)
  - Blood pressure increased [Not Recovered/Not Resolved]
  - Feeling abnormal [Not Recovered/Not Resolved]
  - Blood calcium decreased [Unknown]
  - Hepatic enzyme increased [Unknown]
  - Diarrhoea [Not Recovered/Not Resolved]
  - Fatigue [Not Recovered/Not Resolved]
  - Nausea [Not Recovered/Not Resolved]
  - Dyspepsia [Not Recovered/Not Resolved]
  - Flatulence [Not Recovered/Not Resolved]
  - Hypogeusia [Not Recovered/Not Resolved]
  - Off label use [Unknown]

NARRATIVE: CASE EVENT DATE: 20240101
